FAERS Safety Report 23751977 (Version 1)
Quarter: 2024Q2

REPORT INFORMATION
  Report Type: Spontaneous
  Country: US (occurrence: None)
  Receive Date: 20240417
  Receipt Date: 20240417
  Transmission Date: 20240717
  Serious: No
  Sender: FDA-Public Use
  Company Number: None

PATIENT
  Age: 47 Year
  Sex: Female
  Weight: 92.7 kg

DRUGS (11)
  1. OZEMPIC [Suspect]
     Active Substance: SEMAGLUTIDE
     Indication: Diabetes mellitus
     Dosage: OTHER FREQUENCY : ONCE A WEEK;?
     Route: 058
  2. ALBUTEROL [Concomitant]
     Active Substance: ALBUTEROL
  3. BREO ELLIPTA [Concomitant]
     Active Substance: FLUTICASONE FUROATE\VILANTEROL TRIFENATATE
  4. LORATADINE [Concomitant]
     Active Substance: LORATADINE
  5. METOPROLOL [Concomitant]
     Active Substance: METOPROLOL
  6. JARDIANCE [Concomitant]
     Active Substance: EMPAGLIFLOZIN
  7. ADDERALL [Concomitant]
     Active Substance: AMPHETAMINE ASPARTATE\AMPHETAMINE SULFATE\DEXTROAMPHETAMINE SACCHARATE\DEXTROAMPHETAMINE SULFATE
  8. OZEMPIC [Concomitant]
     Active Substance: SEMAGLUTIDE
  9. ATORVASTATIN [Concomitant]
     Active Substance: ATORVASTATIN
  10. SINGULAIR [Concomitant]
     Active Substance: MONTELUKAST SODIUM
  11. LOSARTAN [Concomitant]
     Active Substance: LOSARTAN

REACTIONS (5)
  - Impaired gastric emptying [None]
  - Constipation [None]
  - Gastrointestinal sounds abnormal [None]
  - Electrolyte imbalance [None]
  - Dehydration [None]

NARRATIVE: CASE EVENT DATE: 20240407
